FAERS Safety Report 10977572 (Version 1)
Quarter: 2015Q1

REPORT INFORMATION
  Report Type: Spontaneous
  Country: US (occurrence: None)
  Receive Date: 20150330
  Receipt Date: 20150330
  Transmission Date: 20150721
  Serious: Yes (Hospitalization, Other)
  Sender: FDA-Public Use
  Company Number: ADR-2015-00590

PATIENT
  Age: 32 Year
  Sex: Male

DRUGS (3)
  1. LIORESAL [Suspect]
     Active Substance: BACLOFEN
     Indication: CEREBRAL PALSY
  2. MIRALAX [Suspect]
     Active Substance: POLYETHYLENE GLYCOL 3350
  3. VALIUM [Suspect]
     Active Substance: DIAZEPAM

REACTIONS (16)
  - Musculoskeletal stiffness [None]
  - Joint contracture [None]
  - Seizure [None]
  - Eye movement disorder [None]
  - Pyrexia [None]
  - Protrusion tongue [None]
  - Drug effect decreased [None]
  - Muscle spasms [None]
  - Hyperhidrosis [None]
  - Pneumonia pseudomonal [None]
  - Muscle spasticity [None]
  - Drug withdrawal syndrome [None]
  - Joint hyperextension [None]
  - Hypertonia [None]
  - Posturing [None]
  - Irritability [None]
